FAERS Safety Report 13995592 (Version 1)
Quarter: 2017Q3

REPORT INFORMATION
  Report Type: Spontaneous
  Country: US (occurrence: US)
  Receive Date: 20170921
  Receipt Date: 20170921
  Transmission Date: 20171128
  Serious: Yes (Other)
  Sender: FDA-Public Use
  Company Number: US-PFIZER INC-2017403832

PATIENT
  Age: 79 Year
  Sex: Female

DRUGS (1)
  1. BESPONSA [Suspect]
     Active Substance: INOTUZUMAB OZOGAMICIN
     Dosage: UNK
     Dates: start: 20170913

REACTIONS (7)
  - Neutrophil count decreased [Unknown]
  - Haemoglobin decreased [Unknown]
  - Swollen tongue [Unknown]
  - Tongue disorder [Recovered/Resolved]
  - Dysarthria [Unknown]
  - Lethargy [Unknown]
  - Platelet count decreased [Unknown]

NARRATIVE: CASE EVENT DATE: 20170914
